FAERS Safety Report 5743671-X (Version None)
Quarter: 2008Q2

REPORT INFORMATION
  Report Type: 
  Country: None (occurrence: None)
  Receive Date: 20080516
  Receipt Date: 20080505
  Transmission Date: 20081010
  Serious: Yes (Hospitalization)
  Sender: FDA-Public Use
  Company Number: 2008BI011318

PATIENT
  Age: 64 Year
  Sex: Female

DRUGS (1)
  1. ZEVALIN [Suspect]
     Indication: NON-HODGKIN'S LYMPHOMA
     Dosage: IV
     Route: 042
     Dates: start: 20071205, end: 20071212

REACTIONS (2)
  - BURNING SENSATION [None]
  - TRANSIENT ISCHAEMIC ATTACK [None]
